FAERS Safety Report 8405199-8 (Version None)
Quarter: 2012Q2

REPORT INFORMATION
  Report Type: 
  Country: None (occurrence: None)
  Receive Date: 20120603
  Receipt Date: 20120524
  Transmission Date: 20120825
  Serious: Yes (Hospitalization)
  Sender: FDA-Public Use
  Company Number: JP-VERTEX PHARMACEUTICALS INC.-AE-2012-007854

PATIENT
  Age: 46 Year
  Sex: Male

DRUGS (8)
  1. LENDORMIN [Concomitant]
     Route: 048
  2. RIBAVIRIN [Concomitant]
     Indication: HEPATITIS C
     Route: 048
     Dates: start: 20120216
  3. ALLOPURINOL [Concomitant]
     Route: 048
  4. ROHYPNOL [Concomitant]
     Route: 048
  5. PHENOBARBITAL TAB [Concomitant]
     Route: 048
  6. TELAVIC (TELAPREVIR) [Suspect]
     Indication: HEPATITIS C
     Route: 048
     Dates: start: 20120216, end: 20120509
  7. PEGINTERFERON ALFA-2B [Concomitant]
     Indication: HEPATITIS C
     Route: 051
     Dates: start: 20120216
  8. DEPAKENE [Concomitant]
     Route: 048

REACTIONS (2)
  - TOXIC SKIN ERUPTION [None]
  - BLOOD CREATINE PHOSPHOKINASE INCREASED [None]
